FAERS Safety Report 9524084 (Version 1)
Quarter: 2013Q1

REPORT INFORMATION
  Report Type: Spontaneous
  Country: US (occurrence: None)
  Receive Date: 20130313
  Receipt Date: 20130313
  Transmission Date: 20140127
  Serious: No
  Sender: FDA-Public Use
  Company Number: 1000038487

PATIENT
  Age: 72 Year
  Sex: Female

DRUGS (6)
  1. SAVELLA [Suspect]
     Indication: HEADACHE
     Route: 048
     Dates: start: 20120831, end: 20120831
  2. ATENOLOL (ATENOLOL) (ATENOLOL) [Concomitant]
  3. PLAVIX (CLOPIDOGREL BISULFATE) (CLOPIDOGREL BISULFATE) [Concomitant]
  4. CARDIZEM (DILTIAZEM) (DILTIAZEM) [Concomitant]
  5. IMDUR (ISOSORBIDE MONONITRATE) (ISOSORBIDE MONONITRATE)? [Concomitant]
  6. LIPITOR (ATORVASTATIN CALCIUM) (ATORVASTATIN CALCIUM) [Concomitant]

REACTIONS (2)
  - Headache [None]
  - Off label use [None]
